FAERS Safety Report 12632047 (Version 2)
Quarter: 2016Q3

REPORT INFORMATION
  Report Type: Spontaneous
  Country: US (occurrence: US)
  Receive Date: 20160808
  Receipt Date: 20160808
  Transmission Date: 20161109
  Serious: No
  Sender: FDA-Public Use
  Company Number: US-BEH-2016061794

PATIENT
  Sex: Male
  Weight: 95 kg

DRUGS (22)
  1. DIOVAN HCT [Concomitant]
     Active Substance: HYDROCHLOROTHIAZIDE\VALSARTAN
  2. MISOPROSTOL. [Concomitant]
     Active Substance: MISOPROSTOL
  3. TOPROL XL [Concomitant]
     Active Substance: METOPROLOL SUCCINATE
  4. TRAMADOL. [Concomitant]
     Active Substance: TRAMADOL
  5. DICLOFENAC [Concomitant]
     Active Substance: DICLOFENAC
  6. CRESTOR [Concomitant]
     Active Substance: ROSUVASTATIN CALCIUM
  7. HYDROXYCHLOROQUINE [Concomitant]
     Active Substance: HYDROXYCHLOROQUINE
  8. LEVOTHYROXINE. [Concomitant]
     Active Substance: LEVOTHYROXINE
  9. PREDNISONE. [Concomitant]
     Active Substance: PREDNISONE
  10. HIZENTRA [Suspect]
     Active Substance: HUMAN IMMUNOGLOBULIN G
     Indication: IMMUNODEFICIENCY COMMON VARIABLE
     Route: 058
  11. RANITIDINE. [Concomitant]
     Active Substance: RANITIDINE
  12. NEXIUM [Concomitant]
     Active Substance: ESOMEPRAZOLE MAGNESIUM
  13. VITAMIN D [Concomitant]
     Active Substance: CHOLECALCIFEROL
  14. ACTOS [Concomitant]
     Active Substance: PIOGLITAZONE HYDROCHLORIDE
  15. ACETAMINOPHEN. [Concomitant]
     Active Substance: ACETAMINOPHEN
  16. DIPHENHYDRAMINE. [Concomitant]
     Active Substance: DIPHENHYDRAMINE
  17. COENZYME Q10 [Concomitant]
     Active Substance: UBIDECARENONE
  18. EPIPEN [Concomitant]
     Active Substance: EPINEPHRINE
  19. LIDOCAINE. [Concomitant]
     Active Substance: LIDOCAINE
  20. VIAGRA [Concomitant]
     Active Substance: SILDENAFIL CITRATE
  21. GLIMEPERIDE [Concomitant]
     Active Substance: GLIMEPIRIDE
  22. MULTIVITAMINS [Concomitant]
     Active Substance: VITAMINS

REACTIONS (1)
  - Bronchitis [Unknown]
